FAERS Safety Report 25422991 (Version 1)
Quarter: 2025Q2

REPORT INFORMATION
  Report Type: Spontaneous
  Country: US (occurrence: US)
  Receive Date: 20250611
  Receipt Date: 20250611
  Transmission Date: 20250716
  Serious: No
  Sender: BOEHRINGER INGELHEIM
  Company Number: US-Komodo Health-a23aa0000086fALAAY

PATIENT
  Age: 65 Year
  Sex: Female

DRUGS (2)
  1. OFEV [Suspect]
     Active Substance: NINTEDANIB
     Indication: Product used for unknown indication
  2. OFEV [Suspect]
     Active Substance: NINTEDANIB

REACTIONS (2)
  - Syncope [Recovered/Resolved]
  - Diarrhoea [Recovered/Resolved]
